FAERS Safety Report 6406638-4 (Version None)
Quarter: 2009Q4

REPORT INFORMATION
  Report Type: 
  Country: None (occurrence: None)
  Receive Date: 20091020
  Receipt Date: 20091015
  Transmission Date: 20100525
  Serious: Yes (Death)
  Sender: FDA-Public Use
  Company Number: US-RB-021442-09

PATIENT
  Sex: Male

DRUGS (4)
  1. SUBOXONE [Suspect]
     Indication: DRUG DEPENDENCE
     Route: 060
     Dates: start: 20060101, end: 20091001
  2. RANITIDINE HYDROCHLORIDE [Concomitant]
     Indication: ABDOMINAL PAIN UPPER
     Dosage: DOSING INFORMATION UNKNOWN
     Route: 065
     Dates: end: 20091001
  3. RANITIDINE HYDROCHLORIDE [Concomitant]
     Indication: NAUSEA
     Dosage: DOSING INFORMATION UNKNOWN
     Route: 065
     Dates: end: 20091001
  4. RANITIDINE HYDROCHLORIDE [Concomitant]
     Indication: EATING DISORDER
     Dosage: DOSING INFORMATION UNKNOWN
     Route: 065
     Dates: end: 20091001

REACTIONS (1)
  - DEATH [None]
